FAERS Safety Report 12579191 (Version 2)
Quarter: 2016Q3

REPORT INFORMATION
  Report Type: Spontaneous
  Country: TW (occurrence: TW)
  Receive Date: 20160721
  Receipt Date: 20160805
  Transmission Date: 20161109
  Serious: Yes (Other)
  Sender: FDA-Public Use
  Company Number: TW-BAYER-2016-136787

PATIENT
  Age: 26 Year
  Sex: Female

DRUGS (2)
  1. NEXAVAR [Suspect]
     Active Substance: SORAFENIB
     Indication: METASTATIC RENAL CELL CARCINOMA
     Dosage: 800 MG, QD
     Dates: start: 201308, end: 201309
  2. INTERFERON ALFA NOS [Concomitant]
     Active Substance: INTERFERON ALFA-2A OR INTERFERON ALFA-2B
     Indication: METASTATIC RENAL CELL CARCINOMA
     Dosage: UNK
     Dates: start: 201307

REACTIONS (11)
  - Vaginal infection [None]
  - Asthenia [None]
  - Metastases to skin [None]
  - Palmar-plantar erythrodysaesthesia syndrome [None]
  - Renal cell carcinoma stage IV [None]
  - Cachexia [None]
  - Conjunctivitis [None]
  - Somnolence [None]
  - Hyponatraemia [None]
  - Mucosal inflammation [None]
  - Metastases to lymph nodes [None]

NARRATIVE: CASE EVENT DATE: 201309
